FAERS Safety Report 7981090-6 (Version None)
Quarter: 2011Q4

REPORT INFORMATION
  Report Type: 
  Country: None (occurrence: None)
  Receive Date: 20111215
  Receipt Date: 20111203
  Transmission Date: 20120403
  Serious: Yes (Hospitalization)
  Sender: FDA-Public Use
  Company Number: PT-PAR PHARMACEUTICAL, INC-2011SCPR003467

PATIENT

DRUGS (11)
  1. DOXYCYCLINE [Concomitant]
     Indication: PYREXIA
  2. CEFTRIAXONE [Concomitant]
     Indication: PYREXIA
  3. PREDNISOLONE [Concomitant]
     Indication: STILL'S DISEASE ADULT ONSET
     Dosage: UNK, UNKNOWN
     Route: 065
  4. TRAMADOL HCL [Concomitant]
     Indication: MYALGIA
     Dosage: UNK, UNKNOWN
     Route: 065
  5. CEFTRIAXONE [Concomitant]
     Indication: MYALGIA
     Dosage: UNK, UNKNOWN
     Route: 065
  6. DOXYCYCLINE [Concomitant]
     Indication: MYALGIA
     Dosage: UNK, UNKNOWN
     Route: 065
  7. DOXYCYCLINE [Concomitant]
     Indication: ARTHRALGIA
  8. IBUPROFEN [Suspect]
     Indication: STILL'S DISEASE ADULT ONSET
     Dosage: UNK, UNKNOWN
     Route: 065
  9. TRAMADOL HCL [Concomitant]
     Indication: ARTHRALGIA
  10. TRAMADOL HCL [Concomitant]
     Indication: PYREXIA
  11. CEFTRIAXONE [Concomitant]
     Indication: ARTHRALGIA

REACTIONS (1)
  - HEPATITIS [None]
